FAERS Safety Report 5532557-1 (Version None)
Quarter: 2007Q4

REPORT INFORMATION
  Report Type: 
  Country: None (occurrence: None)
  Receive Date: 20071203
  Receipt Date: 20071126
  Transmission Date: 20080405
  Serious: No
  Sender: FDA-Public Use
  Company Number: US-BOEHRINGER INGELHEIM PHARMACEUTICALS, INC.-2004-BP-14324BP

PATIENT
  Sex: Male

DRUGS (9)
  1. SPIRIVA [Suspect]
     Indication: CHRONIC OBSTRUCTIVE PULMONARY DISEASE
     Route: 055
     Dates: start: 20040101, end: 20040101
  2. VASOTEC [Concomitant]
     Dosage: 10 MG/2/DAY
  3. NORVASC [Concomitant]
  4. ASPIRIN [Concomitant]
  5. LIPITOR [Concomitant]
  6. ACIPHEX [Concomitant]
  7. XALATAN [Concomitant]
     Dosage: 1 DROP  RIGHT EYE - NOW 2 DROPS
     Route: 031
  8. ALPHAGAN [Concomitant]
     Dosage: 1 DROP RIGHT EYE (NOW INCREASED TO 2 DROPS)
     Route: 031
  9. ALBUTEROL [Concomitant]
     Dosage: AS NEEDED

REACTIONS (3)
  - EPISTAXIS [None]
  - HEADACHE [None]
  - INTRAOCULAR PRESSURE INCREASED [None]
